FAERS Safety Report 20643919 (Version 6)
Quarter: 2025Q3

REPORT INFORMATION
  Report Type: Report from Study
  Country: US (occurrence: US)
  Receive Date: 20220328
  Receipt Date: 20250701
  Transmission Date: 20251020
  Serious: Yes (Other)
  Sender: TAKEDA
  Company Number: US-TAKEDA-2022TUS019907

PATIENT
  Sex: Female

DRUGS (18)
  1. PONATINIB [Suspect]
     Active Substance: PONATINIB
     Indication: Acute lymphocytic leukaemia
     Dosage: 15 MILLIGRAM, QD
  2. PONATINIB [Suspect]
     Active Substance: PONATINIB
     Indication: Acute lymphocytic leukaemia (in remission)
     Dosage: 15 MILLIGRAM, QD
  3. PONATINIB [Suspect]
     Active Substance: PONATINIB
     Dosage: 15 MILLIGRAM, QD
  4. PONATINIB [Suspect]
     Active Substance: PONATINIB
     Dosage: 15 MILLIGRAM, QD
  5. PONATINIB [Suspect]
     Active Substance: PONATINIB
  6. FOLIC ACID [Concomitant]
     Active Substance: FOLIC ACID
  7. POTASSIUM [Concomitant]
     Active Substance: POTASSIUM
  8. ACYCLOVIR [Concomitant]
     Active Substance: ACYCLOVIR
  9. PEPCID [Concomitant]
     Active Substance: FAMOTIDINE
  10. SPRYCEL [Concomitant]
     Active Substance: DASATINIB
  11. CARAFATE [Concomitant]
     Active Substance: SUCRALFATE
  12. SULFAMETHOXAZOLE AND TRIMETHOPRIM [Concomitant]
     Active Substance: SULFAMETHOXAZOLE\TRIMETHOPRIM
  13. Black cohosh hot flash relief [Concomitant]
  14. TRAMADOL HCL [Concomitant]
     Active Substance: TRAMADOL HYDROCHLORIDE
  15. LISINOPRIL [Concomitant]
     Active Substance: LISINOPRIL
  16. STOOL SOFTENER (DOCUSATE) [Concomitant]
     Active Substance: DOCUSATE
  17. ASPIRIN [Concomitant]
     Active Substance: ASPIRIN
  18. PANTOPRAZOLE SODIUM [Concomitant]
     Active Substance: PANTOPRAZOLE SODIUM

REACTIONS (4)
  - Thrombosis [Unknown]
  - Malaise [Unknown]
  - Product use issue [Unknown]
  - Product dose omission issue [Unknown]
